FAERS Safety Report 4734677-8 (Version None)
Quarter: 2005Q3

REPORT INFORMATION
  Report Type: 
  Country: None (occurrence: None)
  Receive Date: 20050721
  Receipt Date: 20050422
  Transmission Date: 20060218
  Serious: No
  Sender: FDA-Public Use
  Company Number: 2005SP000305

PATIENT

DRUGS (2)
  1. LUNESTA [Suspect]
     Indication: INSOMNIA
     Dosage: 1 MG;HS; ORAL
     Route: 048
     Dates: start: 20050416, end: 20050419
  2. ZOLOFT [Concomitant]

REACTIONS (6)
  - DRUG INEFFECTIVE [None]
  - DYSGEUSIA [None]
  - EYE PAIN [None]
  - INSOMNIA [None]
  - PHOTOPHOBIA [None]
  - VISION BLURRED [None]
